FAERS Safety Report 6480082-6 (Version None)
Quarter: 2009Q4

REPORT INFORMATION
  Report Type: 
  Country: None (occurrence: None)
  Receive Date: 20091208
  Receipt Date: 20090303
  Transmission Date: 20100525
  Serious: No
  Sender: FDA-Public Use
  Company Number: US-AMGEN-KDL336508

PATIENT
  Sex: Female
  Weight: 61.3 kg

DRUGS (4)
  1. ENBREL [Suspect]
     Indication: RHEUMATOID ARTHRITIS
     Route: 058
     Dates: start: 20081225
  2. PREDNISONE [Concomitant]
     Dates: start: 20080701
  3. ULTRAM [Concomitant]
     Dates: start: 20080701
  4. SYNTHROID [Concomitant]

REACTIONS (7)
  - DRY SKIN [None]
  - INJECTION SITE ERYTHEMA [None]
  - INJECTION SITE REACTION [None]
  - MUSCLE SPASMS [None]
  - NODULE ON EXTREMITY [None]
  - PRURITUS GENERALISED [None]
  - RASH [None]
